FAERS Safety Report 6877710-X (Version None)
Quarter: 2010Q3

REPORT INFORMATION
  Report Type: 
  Country: None (occurrence: None)
  Receive Date: 20100727
  Receipt Date: 20100614
  Transmission Date: 20110219
  Serious: No
  Sender: FDA-Public Use
  Company Number: US-ABBOTT-10P-163-0652639-00

PATIENT
  Sex: Female
  Weight: 61.744 kg

DRUGS (5)
  1. SYNTHROID [Suspect]
     Indication: PRODUCT USED FOR UNKNOWN INDICATION
     Dates: start: 20090901, end: 20100101
  2. SYNTHROID [Suspect]
     Dates: start: 20100315, end: 20100329
  3. SYNTHROID [Suspect]
     Dates: start: 20100329
  4. AVAPRO [Suspect]
     Indication: HYPERTENSION
     Dates: start: 20100323, end: 20100325
  5. DIAZAPAM [Concomitant]
     Indication: PRODUCT USED FOR UNKNOWN INDICATION
     Dosage: PRN

REACTIONS (2)
  - FATIGUE [None]
  - MUSCULAR WEAKNESS [None]
